FAERS Safety Report 10244682 (Version 2)
Quarter: 2014Q2

REPORT INFORMATION
  Report Type: Report from Study
  Country: US (occurrence: US)
  Receive Date: 20140618
  Receipt Date: 20140618
  Transmission Date: 20141212
  Serious: Yes (Hospitalization)
  Sender: FDA-Public Use
  Company Number: US-BRISTOL-MYERS SQUIBB COMPANY-20643250

PATIENT
  Age: 74 Year
  Sex: Male
  Weight: 58 kg

DRUGS (11)
  1. ERBITUX [Suspect]
     Indication: COLON CANCER
     Dosage: LAST DOSE:26MAR14
     Route: 042
     Dates: start: 20140326
  2. IRINOTECAN [Suspect]
     Indication: COLON CANCER
     Route: 042
     Dates: start: 20140326
  3. FLUOROURACIL [Suspect]
     Indication: COLON CANCER
     Dosage: 4250 MG
     Route: 042
     Dates: start: 20140326
  4. FOLINIC ACID [Suspect]
     Indication: COLON CANCER
     Dates: start: 20140326
  5. BICALUTAMIDE [Concomitant]
     Dosage: STRENGTH:50 MG TABS
     Route: 048
  6. FLUCONAZOLE [Concomitant]
     Dosage: STRENGTH:100 MG TABS
     Route: 048
  7. MAGIC MOUTHWASH [Concomitant]
     Route: 048
  8. COLACE CAPS 100 MG [Concomitant]
     Dosage: AS NECESSARY
     Route: 048
  9. MIRTAZAPINE [Concomitant]
     Dosage: STRENGTH: 15MG TABS,1.5 PO DAILY
     Route: 048
  10. NYSTATIN [Concomitant]
     Dosage: STRENGTH:100000/ML SUSPENSION
     Route: 048
  11. PANTOPRAZOLE SODIUM [Concomitant]
     Dosage: STENGTH: 40MG ENTERIC COATED TABS
     Route: 048

REACTIONS (3)
  - Respiratory distress [Unknown]
  - Hypotension [Unknown]
  - Ascites [Unknown]
